FAERS Safety Report 24865558 (Version 2)
Quarter: 2025Q2

REPORT INFORMATION
  Report Type: Report from Study
  Country: GB (occurrence: GB)
  Receive Date: 20250121
  Receipt Date: 20250417
  Transmission Date: 20250717
  Serious: Yes (Other)
  Sender: UCB
  Company Number: GB-UCBSA-2024047921

PATIENT
  Age: 62 Year
  Sex: Female

DRUGS (2)
  1. BIMEKIZUMAB [Suspect]
     Active Substance: BIMEKIZUMAB
     Indication: Psoriasis
     Dosage: 320 MILLIGRAM, EV 4 WEEKS
     Route: 058
     Dates: start: 20240708
  2. BIMEKIZUMAB [Suspect]
     Active Substance: BIMEKIZUMAB
     Dosage: 320 MILLIGRAM, EV 8 WEEKS
     Route: 058

REACTIONS (5)
  - Lower respiratory tract infection [Recovering/Resolving]
  - Oral candidiasis [Recovered/Resolved]
  - Fungal infection [Recovered/Resolved]
  - Eczema [Recovering/Resolving]
  - Fungal foot infection [Recovering/Resolving]

NARRATIVE: CASE EVENT DATE: 20240725
